FAERS Safety Report 8337332-0 (Version None)
Quarter: 2012Q2

REPORT INFORMATION
  Report Type: 
  Country: None (occurrence: None)
  Receive Date: 20120504
  Receipt Date: 20120427
  Transmission Date: 20120825
  Serious: Yes (Hospitalization, Disabling)
  Sender: FDA-Public Use
  Company Number: DE-SANOFI-AVENTIS-2012SA029996

PATIENT
  Age: 57 Year
  Sex: Female
  Weight: 101 kg

DRUGS (4)
  1. LANTUS [Suspect]
     Route: 058
     Dates: start: 20110714
  2. SERUMLIPIDREDUCING AGENTS [Concomitant]
  3. ANTIHYPERTENSIVES [Concomitant]
     Indication: HYPERTENSION
  4. METFORMIN HYDROCHLORIDE/VILDAGLIPTIN [Concomitant]

REACTIONS (2)
  - FACIAL BONES FRACTURE [None]
  - ACCIDENT [None]
